FAERS Safety Report 9387988 (Version 3)
Quarter: 2014Q1

REPORT INFORMATION
  Report Type: Spontaneous
  Country: DE (occurrence: None)
  Receive Date: 20130703
  Receipt Date: 20140313
  Transmission Date: 20141002
  Serious: Yes (Hospitalization, Disabling, Other)
  Sender: FDA-Public Use
  Company Number: 1306-843

PATIENT
  Age: 74 Year
  Sex: Male
  Weight: 43 kg

DRUGS (1)
  1. EYLEA [Suspect]
     Indication: AGE-RELATED MACULAR DEGENERATION
     Route: 031
     Dates: start: 20130423, end: 20130423

REACTIONS (3)
  - Retinal haemorrhage [None]
  - Retinal detachment [None]
  - Retinal pigment epithelial tear [None]
